FAERS Safety Report 10914030 (Version 1)
Quarter: 2015Q1

REPORT INFORMATION
  Report Type: Spontaneous
  Country: US (occurrence: None)
  Receive Date: 20150310
  Receipt Date: 20150310
  Transmission Date: 20150721
  Serious: Yes (Other)
  Sender: FDA-Public Use
  Company Number: USW201502-000053

PATIENT
  Age: 76 Year
  Sex: Male
  Weight: 99.8 kg

DRUGS (1)
  1. APOKYN [Suspect]
     Active Substance: APOMORPHINE HYDROCHLORIDE
     Indication: PARKINSON^S DISEASE
     Dosage: 0.2
     Route: 058
     Dates: start: 20141229, end: 20150113

REACTIONS (2)
  - Cellulitis [None]
  - Blister [None]

NARRATIVE: CASE EVENT DATE: 20150113
